FAERS Safety Report 18369112 (Version 1)
Quarter: 2020Q4

REPORT INFORMATION
  Report Type: Spontaneous
  Country: US (occurrence: US)
  Receive Date: 20201011
  Receipt Date: 20201011
  Transmission Date: 20210114
  Serious: No
  Sender: FDA-Public Use
  Company Number: US-ASTRAZENECA-2020SF28482

PATIENT
  Sex: Male

DRUGS (1)
  1. BRILINTA [Suspect]
     Active Substance: TICAGRELOR
     Route: 048

REACTIONS (6)
  - Dyspnoea [Unknown]
  - Dysphagia [Unknown]
  - Headache [Unknown]
  - Migraine [Unknown]
  - Oropharyngeal pain [Unknown]
  - Tremor [Unknown]
